FAERS Safety Report 11662983 (Version 1)
Quarter: 2015Q4

REPORT INFORMATION
  Report Type: Spontaneous
  Country: US (occurrence: None)
  Receive Date: 20151023
  Receipt Date: 20151023
  Transmission Date: 20160304
  Serious: Yes (Death, Hospitalization)
  Sender: FDA-Public Use
  Company Number: None

PATIENT
  Age: 16 Year
  Sex: Female
  Weight: 53.9 kg

DRUGS (6)
  1. CYCLOPHOSPHAMIDE. [Suspect]
     Active Substance: CYCLOPHOSPHAMIDE
     Dates: end: 20150909
  2. CYTARABINE. [Suspect]
     Active Substance: CYTARABINE
     Dates: end: 20150919
  3. ONCASPAR [Suspect]
     Active Substance: PEGASPARGASE
     Dates: end: 20150923
  4. METHOTREXATE [Suspect]
     Active Substance: METHOTREXATE
     Dates: end: 20150825
  5. MERCAPTOPURINE. [Suspect]
     Active Substance: MERCAPTOPURINE
     Dates: end: 20150919
  6. VINCRISTINE SULFATE. [Suspect]
     Active Substance: VINCRISTINE SULFATE
     Dates: end: 20150930

REACTIONS (30)
  - Hypovolaemia [None]
  - Blood lactic acid increased [None]
  - Dry gangrene [None]
  - Toxic encephalopathy [None]
  - Continuous haemodiafiltration [None]
  - Inflammation [None]
  - Fluid overload [None]
  - Clostridium test positive [None]
  - Metabolic encephalopathy [None]
  - Hypoxia [None]
  - Poor peripheral circulation [None]
  - Weaning failure [None]
  - Fluid retention [None]
  - Fungal infection [None]
  - Mental impairment [None]
  - Neutropenia [None]
  - Thrombocytopenia [None]
  - Septic shock [None]
  - Gastrointestinal wall thickening [None]
  - Disseminated intravascular coagulation [None]
  - Bone marrow failure [None]
  - Ischaemic hepatitis [None]
  - Tachycardia [None]
  - Escherichia test positive [None]
  - Metabolic disorder [None]
  - Acute kidney injury [None]
  - Multi-organ failure [None]
  - Tachypnoea [None]
  - Hepatic steatosis [None]
  - Pleural effusion [None]

NARRATIVE: CASE EVENT DATE: 20151003
